FAERS Safety Report 9857145 (Version 1)
Quarter: 2014Q1

REPORT INFORMATION
  Report Type: Spontaneous
  Country: GB (occurrence: None)
  Receive Date: 20140128
  Receipt Date: 20140128
  Transmission Date: 20141002
  Serious: Yes (Other)
  Sender: FDA-Public Use
  Company Number: 2014-000151

PATIENT
  Age: 24 Year
  Sex: Female

DRUGS (1)
  1. DORYX [Suspect]
     Route: 048
     Dates: start: 20130825

REACTIONS (5)
  - Intracranial pressure increased [None]
  - Headache [None]
  - Papilloedema [None]
  - Abnormal sensation in eye [None]
  - Visual impairment [None]
